FAERS Safety Report 21192001 (Version 3)
Quarter: 2022Q3

REPORT INFORMATION
  Report Type: Spontaneous
  Country: US (occurrence: US)
  Receive Date: 20220809
  Receipt Date: 20220929
  Transmission Date: 20221027
  Serious: Yes (Other)
  Sender: FDA-Public Use
  Company Number: US-ORGANON-O2208USA000529

PATIENT
  Sex: Female
  Weight: 94.24 kg

DRUGS (2)
  1. NEXPLANON [Suspect]
     Active Substance: ETONOGESTREL
     Indication: Contraception
     Dosage: 1 IMPLANT OF 68MG IN LEFT UPPER ARM
     Route: 059
     Dates: start: 20220426, end: 20220803
  2. NEXPLANON [Suspect]
     Active Substance: ETONOGESTREL
     Dosage: 1 IMPLANT
     Dates: end: 20220426

REACTIONS (9)
  - Road traffic accident [Unknown]
  - Device dislocation [Recovered/Resolved]
  - Device breakage [Recovered/Resolved]
  - Implant site pain [Unknown]
  - Headache [Unknown]
  - Arthralgia [Unknown]
  - Implant site scar [Unknown]
  - Complication of device removal [Recovered/Resolved]
  - Device issue [Recovered/Resolved]

NARRATIVE: CASE EVENT DATE: 20220101
